FAERS Safety Report 15488632 (Version 2)
Quarter: 2018Q4

REPORT INFORMATION
  Report Type: Spontaneous
  Country: US (occurrence: US)
  Receive Date: 20181011
  Receipt Date: 20181120
  Transmission Date: 20190205
  Serious: Yes (Hospitalization)
  Sender: FDA-Public Use
  Company Number: US-SAOL THERAPEUTICS-2018SAO01031

PATIENT
  Age: 19 Year
  Sex: Female
  Weight: 27.7 kg

DRUGS (8)
  1. PROVENTIL [Concomitant]
     Active Substance: ALBUTEROL
  2. LIORESAL [Suspect]
     Active Substance: BACLOFEN
     Indication: CEREBRAL PALSY
  3. LIORESAL [Suspect]
     Active Substance: BACLOFEN
     Indication: MUSCLE SPASTICITY
     Dosage: 837 ?G, \DAY
     Route: 037
     Dates: start: 200404
  4. VITAMIN D [Concomitant]
     Active Substance: CHOLECALCIFEROL
  5. MVI [Concomitant]
     Active Substance: VITAMINS
  6. DIASTAT [Concomitant]
     Active Substance: DIAZEPAM
     Dosage: UNK, AS NEEDED
  7. DEPAKOTE [Concomitant]
     Active Substance: DIVALPROEX SODIUM
  8. DULCOLAX NOS [Concomitant]
     Active Substance: BISACODYL OR DOCUSATE SODIUM

REACTIONS (6)
  - Depressed level of consciousness [Recovered/Resolved]
  - Heart rate increased [Recovered/Resolved]
  - Drug withdrawal syndrome [Recovered/Resolved]
  - Device failure [Recovered/Resolved]
  - Muscle spasticity [Recovered/Resolved]
  - Respiratory distress [Recovered/Resolved]

NARRATIVE: CASE EVENT DATE: 20181002
